FAERS Safety Report 12832295 (Version 1)
Quarter: 2016Q4

REPORT INFORMATION
  Report Type: Spontaneous
  Country: DE (occurrence: DE)
  Receive Date: 20161010
  Receipt Date: 20161010
  Transmission Date: 20170207
  Serious: No
  Sender: FDA-Public Use
  Company Number: DE-JAZZ-2016-DE-015057

PATIENT
  Age: 60 Year
  Sex: Female

DRUGS (4)
  1. ANAFRANIL [Concomitant]
     Active Substance: CLOMIPRAMINE HYDROCHLORIDE
     Indication: DEPRESSION
  2. LEVODOPA [Concomitant]
     Active Substance: LEVODOPA
     Indication: RESTLESS LEGS SYNDROME
  3. XYREM [Suspect]
     Active Substance: SODIUM OXYBATE
     Indication: NARCOLEPSY
     Dosage: 4 G, BID
     Route: 048
  4. XYREM [Suspect]
     Active Substance: SODIUM OXYBATE
     Indication: CATAPLEXY
     Dosage: 4 G, QD
     Route: 048

REACTIONS (7)
  - Fall [Unknown]
  - Injury [Unknown]
  - Somnolence [Unknown]
  - Intentional product misuse [Unknown]
  - Drug ineffective [Unknown]
  - Contusion [Unknown]
  - Rapid eye movement sleep behaviour disorder [Unknown]
